FAERS Safety Report 7887744-4 (Version None)
Quarter: 2011Q4

REPORT INFORMATION
  Report Type: 
  Country: None (occurrence: None)
  Receive Date: 20111101
  Receipt Date: 20111026
  Transmission Date: 20120403
  Serious: Yes (Life-Threatening, Hospitalization, Disabling, Other)
  Sender: FDA-Public Use
  Company Number: 2011SP050670

PATIENT
  Age: 28 Year
  Sex: Female
  Weight: 83.0083 kg

DRUGS (1)
  1. NUVARING [Suspect]
     Indication: CONTRACEPTION
     Dosage: ;QM;VAG
     Route: 067
     Dates: start: 20090101, end: 20111017

REACTIONS (2)
  - PNEUMONIA [None]
  - PULMONARY EMBOLISM [None]
